FAERS Safety Report 15432593 (Version 1)
Quarter: 2018Q3

REPORT INFORMATION
  Report Type: Spontaneous
  Country: US (occurrence: US)
  Receive Date: 20180927
  Receipt Date: 20180927
  Transmission Date: 20181010
  Serious: Yes (Death)
  Sender: FDA-Public Use
  Company Number: US-ROCHE-2190313

PATIENT
  Age: 95 Year
  Sex: Female

DRUGS (15)
  1. GUAIFENESIN. [Concomitant]
     Active Substance: GUAIFENESIN
  2. BISACODYL. [Concomitant]
     Active Substance: BISACODYL
  3. TUMS [Concomitant]
     Active Substance: CALCIUM CARBONATE
  4. GABAPENTIN. [Concomitant]
     Active Substance: GABAPENTIN
  5. MONTELUKAST SODIUM. [Concomitant]
     Active Substance: MONTELUKAST SODIUM
  6. TRIMETHOPRIM. [Concomitant]
     Active Substance: TRIMETHOPRIM
  7. LOSARTAN. [Concomitant]
     Active Substance: LOSARTAN
  8. ERIVEDGE [Suspect]
     Active Substance: VISMODEGIB
     Indication: BASAL CELL CARCINOMA
     Dosage: DAILY
     Route: 048
     Dates: start: 20180404
  9. LEVOTHYROXIN [Concomitant]
     Active Substance: LEVOTHYROXINE
  10. LORATADINE. [Concomitant]
     Active Substance: LORATADINE
  11. MIRALAX [Concomitant]
     Active Substance: POLYETHYLENE GLYCOL 3350
  12. SENNA [Concomitant]
     Active Substance: SENNA LEAF\SENNOSIDES\SENNOSIDES A AND B
  13. TYLENOL [Concomitant]
     Active Substance: ACETAMINOPHEN
  14. FUROSEMIDE. [Concomitant]
     Active Substance: FUROSEMIDE
  15. OMEPRAZOLE. [Concomitant]
     Active Substance: OMEPRAZOLE

REACTIONS (1)
  - Death [Fatal]

NARRATIVE: CASE EVENT DATE: 20180922
